FAERS Safety Report 4947797-X (Version None)
Quarter: 2006Q1

REPORT INFORMATION
  Report Type: 
  Country: None (occurrence: None)
  Receive Date: 20060320
  Receipt Date: 20060217
  Transmission Date: 20060701
  Serious: Yes (Life-Threatening, Disabling, Congenital Anomaly)
  Sender: FDA-Public Use
  Company Number: JP-JPN-A200600675

PATIENT
  Age: 0 Day
  Sex: Male
  Weight: 2.8 kg

DRUGS (3)
  1. PAXIL [Suspect]
     Dosage: 40MG PER DAY
     Dates: end: 20060215
  2. HIRNAMIN [Suspect]
     Dosage: 5MG FOUR TIMES PER DAY
     Dates: end: 20060215
  3. PURSENNID [Concomitant]

REACTIONS (4)
  - APNOEIC ATTACK [None]
  - DRUG EXPOSURE DURING PREGNANCY [None]
  - NEONATAL ASPHYXIA [None]
  - SYNDACTYLY [None]
